FAERS Safety Report 15354674 (Version 1)
Quarter: 2018Q3

REPORT INFORMATION
  Report Type: Other
  Country: IT (occurrence: IT)
  Receive Date: 20180906
  Receipt Date: 20180906
  Transmission Date: 20181010
  Serious: Yes (Hospitalization, Other)
  Sender: FDA-Public Use
  Company Number: IT-MACLEODS PHARMACEUTICALS US LTD-MAC2018016488

PATIENT

DRUGS (2)
  1. LEVOFLOXACIN 500 MG TABLET [Suspect]
     Active Substance: LEVOFLOXACIN
     Indication: DRUG ABUSE
     Dosage: 2500 MILLIGRAM, SINGLE, 5 TABLETS
     Route: 048
     Dates: start: 20180705, end: 20180705
  2. LORAZEPAM. [Suspect]
     Active Substance: LORAZEPAM
     Indication: DRUG ABUSE
     Dosage: 40 MILLIGRAM, SINGLE, 2MG/ML 2 PACKS
     Route: 048
     Dates: start: 20180705, end: 20180705

REACTIONS (2)
  - Palpitations [Recovering/Resolving]
  - Drug abuse [Recovering/Resolving]

NARRATIVE: CASE EVENT DATE: 20180705
